FAERS Safety Report 5358059-3 (Version None)
Quarter: 2007Q2

REPORT INFORMATION
  Report Type: 
  Country: None (occurrence: None)
  Receive Date: 20070530
  Receipt Date: 20061018
  Transmission Date: 20071010
  Serious: No
  Sender: FDA-Public Use
  Company Number: US200606000864

PATIENT
  Sex: Male
  Weight: 141.5 kg

DRUGS (4)
  1. ZYPREXA [Suspect]
     Dosage: 5 MG
     Dates: start: 19990301, end: 20030801
  2. HALOPERIDOL [Concomitant]
  3. LITHIUM CARBONATE [Concomitant]
  4. SERTRALINE [Concomitant]

REACTIONS (2)
  - DIABETES MELLITUS [None]
  - OBESITY [None]
